FAERS Safety Report 16146102 (Version 1)
Quarter: 2019Q2

REPORT INFORMATION
  Report Type: Spontaneous
  Country: FR (occurrence: FR)
  Receive Date: 20190402
  Receipt Date: 20190402
  Transmission Date: 20190711
  Serious: Yes (Hospitalization)
  Sender: FDA-Public Use
  Company Number: FR-SA-2019SA084300

PATIENT
  Age: 31 Year
  Sex: Female
  Weight: 57 kg

DRUGS (8)
  1. BACLOFENE ZENTIVA [Suspect]
     Active Substance: BACLOFEN
     Indication: PRODUCT USED FOR UNKNOWN INDICATION
     Dosage: UNK
     Route: 048
     Dates: start: 20190212, end: 20190213
  2. LOVENOX [Suspect]
     Active Substance: ENOXAPARIN SODIUM
     Dosage: UNK
     Route: 058
     Dates: start: 20190213, end: 20190213
  3. MORPHINE SALT NOT SPECIFIED [Suspect]
     Active Substance: MORPHINE
     Indication: PAIN
     Dosage: 1 UNK TOTAL
     Route: 041
     Dates: start: 20190212, end: 20190212
  4. AMIKACIN SULFATE. [Suspect]
     Active Substance: AMIKACIN SULFATE
     Indication: INFECTION
     Dosage: 1 UNK, TOTAL
     Route: 041
     Dates: start: 20190212
  5. PIPERACILLINE PANPHARMA [Suspect]
     Active Substance: PIPERACILLIN SODIUM
     Indication: INFECTION
     Dosage: UNK
     Route: 041
     Dates: start: 20190212, end: 20190213
  6. INSULIN [Suspect]
     Active Substance: INSULIN NOS
     Indication: DIABETES MELLITUS
     Dosage: UNK
     Route: 041
     Dates: start: 20190212, end: 20190215
  7. ZOLPIDEM TARTRATE. [Suspect]
     Active Substance: ZOLPIDEM TARTRATE
     Indication: INSOMNIA
     Dosage: 1 UNK, TOTAL
     Route: 048
     Dates: start: 20190212, end: 20190212
  8. LEVOFLOXACINE [LEVOFLOXACIN HEMIHYDRATE] [Suspect]
     Active Substance: LEVOFLOXACIN
     Indication: INFECTION
     Dosage: UNK
     Route: 041
     Dates: start: 20190212, end: 20190217

REACTIONS (1)
  - Rash [Recovered/Resolved]

NARRATIVE: CASE EVENT DATE: 201902
